FAERS Safety Report 15358836 (Version 4)
Quarter: 2018Q4

REPORT INFORMATION
  Report Type: Report from Study
  Country: None (occurrence: SE)
  Receive Date: 20180906
  Receipt Date: 20181106
  Transmission Date: 20190204
  Serious: Yes (Hospitalization)
  Sender: FDA-Public Use
  Company Number: SE-ABBVIE-18P-150-2469243-00

PATIENT
  Age: 86 Year
  Sex: Female
  Weight: 78 kg

DRUGS (25)
  1. MOVICOL [Concomitant]
     Active Substance: POLYETHYLENE GLYCOL 3350\POTASSIUM CHLORIDE\SODIUM BICARBONATE\SODIUM CHLORIDE
     Indication: CONSTIPATION PROPHYLAXIS
     Route: 048
     Dates: start: 20180426
  2. LACTATED RINGERS SOLUTION [Concomitant]
     Active Substance: CALCIUM CHLORIDE\POTASSIUM CHLORIDE\SODIUM CHLORIDE\SODIUM LACTATE
     Indication: PROPHYLAXIS
     Route: 042
     Dates: start: 20180515, end: 20180522
  3. VENETOCLAX. [Suspect]
     Active Substance: VENETOCLAX
     Route: 048
     Dates: start: 20180518, end: 20180827
  4. AZACITIDINE. [Suspect]
     Active Substance: AZACITIDINE
     Indication: ACUTE MYELOID LEUKAEMIA
     Dosage: DAY 1-7 OF EACH 28-DAY CYCLE
     Route: 058
     Dates: start: 20180516, end: 20180815
  5. ONDANSETRON [Concomitant]
     Active Substance: ONDANSETRON
     Indication: PROPHYLAXIS OF NAUSEA AND VOMITING
     Route: 048
     Dates: start: 20180516
  6. PREDNISOLON [Concomitant]
     Active Substance: PREDNISOLONE
     Indication: ACUTE MYELOID LEUKAEMIA
     Route: 048
     Dates: start: 20180503, end: 20180509
  7. OXYNORM [Concomitant]
     Active Substance: OXYCODONE HYDROCHLORIDE
     Indication: BACK PAIN
     Route: 048
     Dates: start: 20180426
  8. IBUMETIN [Concomitant]
     Active Substance: IBUPROFEN
     Indication: PAIN PROPHYLAXIS
     Dosage: QD AFTER INJECTIONS
     Route: 003
     Dates: start: 20180516
  9. VISCOTEARS [Concomitant]
     Active Substance: CARBOMER
     Indication: DRY EYE
     Dosage: 1 DOSING
     Route: 047
     Dates: start: 2016
  10. VENETOCLAX. [Suspect]
     Active Substance: VENETOCLAX
     Route: 048
     Dates: start: 20180517, end: 20180517
  11. AZACITIDINE. [Suspect]
     Active Substance: AZACITIDINE
     Dosage: DAY 1-7 OF EACH 28-DAY CYCLE
     Route: 058
     Dates: start: 20180913
  12. PREDNISOLON [Concomitant]
     Active Substance: PREDNISOLONE
     Route: 048
     Dates: start: 20180823, end: 20180916
  13. PREDNISOLON [Concomitant]
     Active Substance: PREDNISOLONE
     Indication: NECK PAIN
     Route: 048
     Dates: start: 20180510, end: 20180515
  14. PREDNISOLON [Concomitant]
     Active Substance: PREDNISOLONE
     Indication: PRURITUS
     Route: 048
     Dates: start: 20180516, end: 20180516
  15. PREDNISOLON [Concomitant]
     Active Substance: PREDNISOLONE
     Route: 048
     Dates: start: 20180612, end: 20180809
  16. VENETOCLAX. [Suspect]
     Active Substance: VENETOCLAX
     Route: 048
     Dates: start: 20180913
  17. PREDNISOLON [Concomitant]
     Active Substance: PREDNISOLONE
     Route: 048
     Dates: start: 20180519, end: 20180611
  18. PREDNISOLON [Concomitant]
     Active Substance: PREDNISOLONE
     Route: 048
     Dates: start: 20180917, end: 20180920
  19. FURIX [Concomitant]
     Active Substance: FUROSEMIDE
     Indication: OEDEMA PERIPHERAL
     Route: 048
     Dates: start: 20180417
  20. VENETOCLAX. [Suspect]
     Active Substance: VENETOCLAX
     Indication: ACUTE MYELOID LEUKAEMIA
     Route: 048
     Dates: start: 20180516, end: 20180516
  21. PREDNISOLON [Concomitant]
     Active Substance: PREDNISOLONE
     Indication: MUSCULOSKELETAL PAIN
     Route: 048
     Dates: start: 20180517, end: 20180517
  22. PREDNISOLON [Concomitant]
     Active Substance: PREDNISOLONE
     Route: 048
     Dates: start: 20180813, end: 20180822
  23. PREDNISOLON [Concomitant]
     Active Substance: PREDNISOLONE
     Route: 048
     Dates: start: 20180921
  24. ALVEDON [Concomitant]
     Active Substance: ACETAMINOPHEN
     Indication: BACK PAIN
     Route: 048
     Dates: start: 20180425
  25. ALLOPURINOL. [Concomitant]
     Active Substance: ALLOPURINOL
     Indication: PROPHYLAXIS
     Route: 048
     Dates: start: 20180515, end: 20180905

REACTIONS (2)
  - Skin turgor decreased [Recovered/Resolved]
  - Gingivitis [Recovered/Resolved]

NARRATIVE: CASE EVENT DATE: 20180827
